FAERS Safety Report 8122474-5 (Version None)
Quarter: 2012Q1

REPORT INFORMATION
  Report Type: 
  Country: None (occurrence: None)
  Receive Date: 20120208
  Receipt Date: 20110308
  Transmission Date: 20120608
  Serious: Yes (Hospitalization)
  Sender: FDA-Public Use
  Company Number: US-ASTRAZENECA-2011SE09688

PATIENT
  Age: 67 Year
  Sex: Female

DRUGS (1)
  1. ACCOLATE [Suspect]
     Route: 048

REACTIONS (3)
  - MALAISE [None]
  - ASTHMA [None]
  - TOOTH FRACTURE [None]
